FAERS Safety Report 12990183 (Version 3)
Quarter: 2016Q4

REPORT INFORMATION
  Report Type: Report from Study
  Country: US (occurrence: US)
  Receive Date: 20161201
  Receipt Date: 20161227
  Transmission Date: 20170207
  Serious: Yes (Hospitalization, Other)
  Sender: FDA-Public Use
  Company Number: US-GILEAD-2016-0245905

PATIENT
  Age: 61 Year
  Sex: Male
  Weight: 74.14 kg

DRUGS (15)
  1. AMBRISENTAN [Suspect]
     Active Substance: AMBRISENTAN
     Indication: PRODUCT USED FOR UNKNOWN INDICATION
     Dosage: 5 MG, QD
     Route: 065
  2. APIXABAN [Concomitant]
     Active Substance: APIXABAN
  3. HYDROCERIN [Concomitant]
  4. MAGNESIUM OXIDE. [Concomitant]
     Active Substance: MAGNESIUM OXIDE
  5. CYANOCOBALAMIN. [Concomitant]
     Active Substance: CYANOCOBALAMIN
  6. DOCUSATE [Concomitant]
     Active Substance: DOCUSATE
  7. SERTRALINE [Concomitant]
     Active Substance: SERTRALINE HYDROCHLORIDE
  8. SILDENAFIL. [Concomitant]
     Active Substance: SILDENAFIL
  9. ATORVASTIN [Concomitant]
     Active Substance: ATORVASTATIN
  10. PANTOPRAZOLE [Concomitant]
     Active Substance: PANTOPRAZOLE SODIUM
  11. CARVEDILOL. [Concomitant]
     Active Substance: CARVEDILOL
  12. ONDANSETRON [Concomitant]
     Active Substance: ONDANSETRON
  13. POLYTRIM [Concomitant]
     Active Substance: POLYMYXIN B SULFATE\TRIMETHOPRIM SULFATE
  14. TRAMADOL. [Concomitant]
     Active Substance: TRAMADOL
  15. CALCIUM CARBONATE. [Concomitant]
     Active Substance: CALCIUM CARBONATE

REACTIONS (2)
  - Device related infection [Unknown]
  - Arteriovenous graft [Recovered/Resolved]

NARRATIVE: CASE EVENT DATE: 20161128
